FAERS Safety Report 14566440 (Version 2)
Quarter: 2018Q1

REPORT INFORMATION
  Report Type: Spontaneous
  Country: AU (occurrence: AU)
  Receive Date: 20180223
  Receipt Date: 20180302
  Transmission Date: 20180509
  Serious: Yes (Hospitalization, Other)
  Sender: FDA-Public Use
  Company Number: AU-ABBVIE-18S-008-2263081-00

PATIENT
  Age: 55 Year
  Sex: Female

DRUGS (10)
  1. DARUNAVIR [Suspect]
     Active Substance: DARUNAVIR
     Indication: HIV INFECTION
     Route: 065
  2. TENOFOVIR DISOPROXIL FUMARATE. [Suspect]
     Active Substance: TENOFOVIR DISOPROXIL FUMARATE
     Indication: HIV INFECTION
     Route: 065
  3. FLUCYTOSINE. [Suspect]
     Active Substance: FLUCYTOSINE
     Indication: PNEUMONIA CRYPTOCOCCAL
  4. AMBISOME [Suspect]
     Active Substance: AMPHOTERICIN B
     Indication: MENINGITIS CRYPTOCOCCAL
     Route: 065
  5. AMBISOME [Suspect]
     Active Substance: AMPHOTERICIN B
     Indication: PNEUMONIA CRYPTOCOCCAL
  6. FLUCONAZOLE. [Concomitant]
     Active Substance: FLUCONAZOLE
     Indication: MENINGITIS CRYPTOCOCCAL
     Route: 065
  7. RITONAVIR. [Suspect]
     Active Substance: RITONAVIR
     Indication: HIV INFECTION
     Route: 048
  8. DOLUTEGRAVIR [Suspect]
     Active Substance: DOLUTEGRAVIR
     Indication: HIV INFECTION
     Route: 065
  9. FLUCYTOSINE. [Suspect]
     Active Substance: FLUCYTOSINE
     Indication: MENINGITIS CRYPTOCOCCAL
     Route: 065
  10. FLUCONAZOLE. [Concomitant]
     Active Substance: FLUCONAZOLE
     Indication: PNEUMONIA CRYPTOCOCCAL

REACTIONS (6)
  - Nausea [Unknown]
  - Pancytopenia [Unknown]
  - Adjusted calcium increased [Recovered/Resolved]
  - Immune reconstitution inflammatory syndrome [Unknown]
  - Renal impairment [Unknown]
  - Rash [Unknown]
